FAERS Safety Report 23638808 (Version 2)
Quarter: 2024Q1

REPORT INFORMATION
  Report Type: Spontaneous
  Country: JP (occurrence: JP)
  Receive Date: 20240315
  Receipt Date: 20240320
  Transmission Date: 20240409
  Serious: Yes (Other)
  Sender: FDA-Public Use
  Company Number: JP-009507513-2403JPN004173

PATIENT
  Age: 67 Year
  Sex: Female

DRUGS (1)
  1. PEMBROLIZUMAB [Suspect]
     Active Substance: PEMBROLIZUMAB
     Indication: Renal neoplasm
     Dosage: 200 MILLIGRAM, Q3W
     Route: 042

REACTIONS (4)
  - Tumour pseudoprogression [Recovered/Resolved]
  - Immune-mediated dermatitis [Recovered/Resolved]
  - Inflammation [Recovered/Resolved]
  - Off label use [Unknown]
